FAERS Safety Report 11729013 (Version 1)
Quarter: 2015Q4

REPORT INFORMATION
  Report Type: Spontaneous
  Country: US (occurrence: US)
  Receive Date: 20151110
  Receipt Date: 20151110
  Transmission Date: 20160304
  Serious: No
  Sender: FDA-Public Use
  Company Number: US-ELI_LILLY_AND_COMPANY-US201112005224

PATIENT
  Sex: Female

DRUGS (1)
  1. FORTEO [Suspect]
     Active Substance: TERIPARATIDE
     Indication: OSTEOPOROSIS
     Dosage: UNK, UNKNOWN

REACTIONS (15)
  - Urticaria [Unknown]
  - Arthralgia [Unknown]
  - Oedema [Unknown]
  - Dizziness [Unknown]
  - Weight increased [Recovered/Resolved]
  - Vertigo [Unknown]
  - Intentional product misuse [Unknown]
  - Feeling cold [Unknown]
  - Pulmonary congestion [Recovered/Resolved]
  - Wheezing [Unknown]
  - Heart rate increased [Unknown]
  - Cold sweat [Unknown]
  - Pain [Unknown]
  - Joint stiffness [Unknown]
  - Cough [Unknown]
